FAERS Safety Report 4949394-9 (Version None)
Quarter: 2006Q1

REPORT INFORMATION
  Report Type: 
  Country: None (occurrence: None)
  Receive Date: 20060316
  Receipt Date: 20060303
  Transmission Date: 20060701
  Serious: Yes (Hospitalization)
  Sender: FDA-Public Use
  Company Number: 06-NIP00024

PATIENT
  Age: 73 Year
  Sex: Female

DRUGS (4)
  1. NIPENT [Suspect]
     Indication: CHRONIC LYMPHOCYTIC LEUKAEMIA
     Dosage: (1.25 MG/M2, DAY #2, 3, 4), INTRAVENOUS
     Route: 042
     Dates: start: 20060221, end: 20060224
  2. RITUXIMAB (RITUXIMAB) (RITUXIMAB) [Suspect]
     Indication: CHRONIC LYMPHOCYTIC LEUKAEMIA
     Dosage: (375 MG/M2, DAY #1), INTRAVENOUS
     Route: 042
     Dates: start: 20060220, end: 20060220
  3. GEMCITABINE (GEMCITABINE) (GEMCITABINE) [Suspect]
     Indication: CHRONIC LYMPHOCYTIC LEUKAEMIA
     Dosage: (750 MG/M2, DAY #2), INTRAVENOUS
     Route: 042
     Dates: start: 20060221, end: 20060221
  4. NEULASTA [Suspect]
     Indication: CHRONIC LYMPHOCYTIC LEUKAEMIA
     Dosage: (6 MG, DAY #5), SUBCUTANEOUS
     Route: 058
     Dates: start: 20060224, end: 20060224

REACTIONS (7)
  - ANAEMIA [None]
  - ENTERITIS [None]
  - HERPES ZOSTER [None]
  - LEUKOPENIA [None]
  - LYMPHADENOPATHY [None]
  - NEUTROPENIA [None]
  - UPPER RESPIRATORY TRACT INFECTION [None]
